FAERS Safety Report 8911874 (Version 1)
Quarter: 2012Q4

REPORT INFORMATION
  Report Type: Spontaneous
  Country: US (occurrence: None)
  Receive Date: 20121113
  Receipt Date: 20121113
  Transmission Date: 20130627
  Serious: Yes (Hospitalization, Other)
  Sender: FDA-Public Use
  Company Number: 2012P1063570

PATIENT
  Sex: Female

DRUGS (1)
  1. FENTANYL PATCH [Suspect]
     Dates: end: 2012

REACTIONS (4)
  - Back disorder [None]
  - Ulcer haemorrhage [None]
  - Unevaluable event [None]
  - Drug effect increased [None]
